FAERS Safety Report 10370947 (Version 1)
Quarter: 2014Q3

REPORT INFORMATION
  Report Type: Spontaneous
  Country: US (occurrence: US)
  Receive Date: 20140808
  Receipt Date: 20140808
  Transmission Date: 20150326
  Serious: Yes (Other)
  Sender: FDA-Public Use
  Company Number: US-PFIZER INC-2014216516

PATIENT
  Age: 55 Year
  Sex: Male
  Weight: 74.83 kg

DRUGS (2)
  1. LYRICA [Suspect]
     Active Substance: PREGABALIN
     Indication: NEUROPATHY PERIPHERAL
     Dosage: 75 MG, 2X/DAY
     Route: 048
     Dates: start: 201312
  2. POTASSIUM [Concomitant]
     Active Substance: POTASSIUM
     Dosage: UNK

REACTIONS (4)
  - Accident [Unknown]
  - Lower limb fracture [Unknown]
  - Pain in extremity [Unknown]
  - Joint injury [Unknown]

NARRATIVE: CASE EVENT DATE: 2014
